FAERS Safety Report 9204944 (Version 1)
Quarter: 2013Q2

REPORT INFORMATION
  Report Type: Spontaneous
  Country: US (occurrence: US)
  Receive Date: 20130402
  Receipt Date: 20130402
  Transmission Date: 20140414
  Serious: Yes (Death)
  Sender: FDA-Public Use
  Company Number: US-LUNDBECK-DKLU1089917

PATIENT
  Sex: Female

DRUGS (1)
  1. SABRIL [Suspect]
     Indication: INFANTILE SPASMS
     Dates: start: 20120719

REACTIONS (1)
  - Pneumonia [Fatal]
